FAERS Safety Report 4831263-6 (Version None)
Quarter: 2005Q4

REPORT INFORMATION
  Report Type: 
  Country: None (occurrence: None)
  Receive Date: 20051118
  Receipt Date: 20051103
  Transmission Date: 20060501
  Serious: Yes (Other)
  Sender: FDA-Public Use
  Company Number: PHEH2005US12185

PATIENT
  Sex: Female

DRUGS (1)
  1. ZOMETA [Suspect]

REACTIONS (4)
  - IMPAIRED HEALING [None]
  - OSTEITIS [None]
  - OSTEOMYELITIS [None]
  - TOOTH EXTRACTION [None]
